FAERS Safety Report 6576149-4 (Version None)
Quarter: 2010Q1

REPORT INFORMATION
  Report Type: 
  Country: None (occurrence: None)
  Receive Date: 20100209
  Receipt Date: 20100208
  Transmission Date: 20100710
  Serious: Yes (Other)
  Sender: FDA-Public Use
  Company Number: CHPA2010US02678

PATIENT
  Age: 89 Year
  Sex: Male
  Weight: 82.54 kg

DRUGS (3)
  1. TRIAMINIC MULTI-SYMPTOM FEVER (NCH) [Suspect]
     Indication: COUGH
     Dosage: 3 TSP, ONCE/SINGLE
     Route: 048
     Dates: start: 20100205, end: 20100205
  2. TRIAMINIC MULTI-SYMPTOM FEVER (NCH) [Suspect]
     Indication: RHINORRHOEA
  3. TRIAMINIC MULTI-SYMPTOM FEVER (NCH) [Suspect]
     Indication: RESPIRATORY TRACT IRRITATION

REACTIONS (3)
  - DIZZINESS [None]
  - HALLUCINATION [None]
  - OFF LABEL USE [None]
